FAERS Safety Report 21837480 (Version 1)
Quarter: 2023Q1

REPORT INFORMATION
  Report Type: Spontaneous
  Country: JP (occurrence: JP)
  Receive Date: 20230109
  Receipt Date: 20230109
  Transmission Date: 20230418
  Serious: No
  Sender: FDA-Public Use
  Company Number: JP-PFIZER INC-202300003979

PATIENT
  Age: 8 Decade
  Sex: Female

DRUGS (1)
  1. PAXLOVID [Suspect]
     Active Substance: NIRMATRELVIR\RITONAVIR
     Indication: COVID-19 treatment
     Dosage: UNK
     Route: 048
     Dates: start: 20230102

REACTIONS (3)
  - Incorrect dose administered [Unknown]
  - Wrong dose [Unknown]
  - Product use complaint [Unknown]

NARRATIVE: CASE EVENT DATE: 20230102
